FAERS Safety Report 18508125 (Version 1)
Quarter: 2020Q4

REPORT INFORMATION
  Report Type: Spontaneous
  Country: US (occurrence: US)
  Receive Date: 20201116
  Receipt Date: 20201116
  Transmission Date: 20210114
  Serious: Yes (Other)
  Sender: FDA-Public Use
  Company Number: US-PURDUE-USA-2020-0176063

PATIENT
  Sex: Male

DRUGS (1)
  1. OXYCONTIN [Suspect]
     Active Substance: OXYCODONE HYDROCHLORIDE
     Indication: ACCIDENT
     Dosage: UNK
     Route: 048
     Dates: start: 200001, end: 201706

REACTIONS (3)
  - Overdose [Recovered/Resolved]
  - Heart injury [Not Recovered/Not Resolved]
  - Drug dependence [Recovered/Resolved]
